FAERS Safety Report 4798342-3 (Version None)
Quarter: 2005Q4

REPORT INFORMATION
  Report Type: 
  Country: None (occurrence: None)
  Receive Date: 20051014
  Receipt Date: 20051003
  Transmission Date: 20060501
  Serious: Yes (Hospitalization)
  Sender: FDA-Public Use
  Company Number: 2005GB01919

PATIENT
  Age: 93 Year
  Sex: Male

DRUGS (5)
  1. LISINOPRIL [Suspect]
     Route: 048
  2. AMLODIPINE [Suspect]
     Route: 065
  3. TOLTERODINE [Concomitant]
     Route: 048
  4. FINASTERIDE [Concomitant]
     Route: 048
  5. ATORVASTATIN [Concomitant]
     Route: 048

REACTIONS (2)
  - FALL [None]
  - ORTHOSTATIC HYPOTENSION [None]
